FAERS Safety Report 11451804 (Version 5)
Quarter: 2016Q4

REPORT INFORMATION
  Report Type: Report from Study
  Country: SE (occurrence: SE)
  Receive Date: 20150903
  Receipt Date: 20161207
  Transmission Date: 20170206
  Serious: Yes (Hospitalization)
  Sender: FDA-Public Use
  Company Number: SE-ROCHE-1606808

PATIENT
  Age: 67 Year
  Sex: Female
  Weight: 86 kg

DRUGS (23)
  1. ALLOPURINOL. [Concomitant]
     Active Substance: ALLOPURINOL
     Route: 048
     Dates: start: 20150610, end: 20150708
  2. RASBURICASE [Concomitant]
     Active Substance: RASBURICASE
     Route: 042
     Dates: start: 20150611, end: 20150612
  3. PARACETAMOL [Concomitant]
     Active Substance: ACETAMINOPHEN
  4. VALTREX [Concomitant]
     Active Substance: VALACYCLOVIR HYDROCHLORIDE
  5. IBRUTINIB [Suspect]
     Active Substance: IBRUTINIB
     Indication: CHRONIC LYMPHOCYTIC LEUKAEMIA
     Dosage: THE LAST DOSE PRIOR TO THE HYPOKALEMIA WAS ADMINISTERED ON 09/JUL/2015?MOST RECENT DOSE OF IBRUTINIB
     Route: 065
     Dates: start: 20150611, end: 20150710
  6. MYCOSTATIN [Concomitant]
     Active Substance: NYSTATIN
  7. OBINUTUZUMAB [Suspect]
     Active Substance: OBINUTUZUMAB
     Route: 042
     Dates: start: 20150729
  8. FURIX [Concomitant]
     Active Substance: FUROSEMIDE
  9. KALEORID [Concomitant]
     Active Substance: POTASSIUM CHLORIDE
  10. CHOLECALCIFEROL [Concomitant]
     Active Substance: CHOLECALCIFEROL
  11. FASTURTEC [Concomitant]
     Active Substance: RASBURICASE
  12. OMEGA 3 [Concomitant]
     Active Substance: OMEGA-3 FATTY ACIDS
  13. NYSTATIN. [Concomitant]
     Active Substance: NYSTATIN
     Dosage: 100000 IU/ML
     Route: 048
     Dates: start: 20150625, end: 20150729
  14. ACETYLCYSTEIN [Concomitant]
     Active Substance: ACETYLCYSTEINE
  15. TAVEGYL [Concomitant]
     Active Substance: CLEMASTINE FUMARATE
  16. OBINUTUZUMAB [Suspect]
     Active Substance: OBINUTUZUMAB
     Indication: CHRONIC LYMPHOCYTIC LEUKAEMIA
     Dosage: THE LAST DOSE PRIOR TO THE HYPOKALEMIA WAS ADMINISTERED ON 25/JUN/2015?MOST RECENT DOSE OF OBINUTUZU
     Route: 042
     Dates: start: 20150611, end: 20150709
  17. IBRUTINIB [Suspect]
     Active Substance: IBRUTINIB
     Route: 065
     Dates: start: 20150729
  18. BENDROFLUMETHIAZIDE [Suspect]
     Active Substance: BENDROFLUMETHIAZIDE
     Indication: HYPERTENSION
     Route: 048
     Dates: start: 2000, end: 20150710
  19. LOPERAMIDE [Concomitant]
     Active Substance: LOPERAMIDE
  20. SPIRIVA [Concomitant]
     Active Substance: TIOTROPIUM BROMIDE MONOHYDRATE
  21. OMEPRAZOL [Concomitant]
     Active Substance: OMEPRAZOLE
     Indication: GASTROOESOPHAGEAL REFLUX DISEASE
     Route: 048
     Dates: start: 1995
  22. PULMICORT TURBUHALER [Concomitant]
     Active Substance: BUDESONIDE
  23. AMILORID [Concomitant]

REACTIONS (4)
  - Hypokalaemia [Recovered/Resolved]
  - Hypomagnesaemia [Recovered/Resolved]
  - Hypomagnesaemia [Recovered/Resolved]
  - Herpes zoster [Recovered/Resolved]

NARRATIVE: CASE EVENT DATE: 20150709
